FAERS Safety Report 11878686 (Version 1)
Quarter: 2015Q4

REPORT INFORMATION
  Report Type: Spontaneous
  Country: GB (occurrence: GB)
  Receive Date: 20151230
  Receipt Date: 20151230
  Transmission Date: 20160305
  Serious: Yes (Other)
  Sender: FDA-Public Use
  Company Number: GB-TEVA-620721ACC

PATIENT
  Sex: Female

DRUGS (11)
  1. COTRIMOXAZOLE [Concomitant]
     Active Substance: SULFAMETHOXAZOLE\TRIMETHOPRIM
  2. DEXAMETHASONE. [Concomitant]
     Active Substance: DEXAMETHASONE
  3. LEVETIRACETAM. [Interacting]
     Active Substance: LEVETIRACETAM
     Dates: start: 201512
  4. COCODAMOL [Concomitant]
     Active Substance: ACETAMINOPHEN\CODEINE PHOSPHATE
  5. AMITRIPTYLINE [Suspect]
     Active Substance: AMITRIPTYLINE
     Dosage: AT NIGHT SINCE 4 WEEKSDAILY DOSE: 1 DOSAGE FORM
     Dates: start: 201511
  6. ASPARAGINASE [Interacting]
     Active Substance: ASPARAGINASE
     Dosage: SMILE REGIMEN - 6000 IU/M
  7. ETOPOSIDE. [Concomitant]
     Active Substance: ETOPOSIDE
  8. FLUCONAZOLE. [Concomitant]
     Active Substance: FLUCONAZOLE
  9. IFOSFAMIDE. [Concomitant]
     Active Substance: IFOSFAMIDE
  10. METHOTREXATE [Concomitant]
     Active Substance: METHOTREXATE
  11. ACICLOVIR [Concomitant]
     Active Substance: ACYCLOVIR

REACTIONS (3)
  - Simple partial seizures [Unknown]
  - Blood alkaline phosphatase increased [Not Recovered/Not Resolved]
  - Drug interaction [Unknown]
